FAERS Safety Report 6166801-7 (Version None)
Quarter: 2009Q2

REPORT INFORMATION
  Report Type: 
  Country: None (occurrence: None)
  Receive Date: 20090423
  Receipt Date: 20090423
  Transmission Date: 20091009
  Serious: Yes (Other)
  Sender: FDA-Public Use
  Company Number: None

PATIENT
  Age: 49 Year
  Sex: Female
  Weight: 52.1637 kg

DRUGS (2)
  1. LEVAQUIN [Suspect]
     Indication: DIVERTICULITIS
     Dosage: 750MG DAILY PO
     Route: 048
     Dates: start: 20090212, end: 20090216
  2. FLAGYL [Concomitant]

REACTIONS (3)
  - ASTHENIA [None]
  - JOINT SWELLING [None]
  - MOBILITY DECREASED [None]
